FAERS Safety Report 19724011 (Version 1)
Quarter: 2021Q3

REPORT INFORMATION
  Report Type: Spontaneous
  Country: US (occurrence: US)
  Receive Date: 20210820
  Receipt Date: 20210820
  Transmission Date: 20211014
  Serious: No
  Sender: FDA-Public Use
  Company Number: US-AMGEN-USASP2021124630

PATIENT
  Sex: Female

DRUGS (4)
  1. NPLATE [Suspect]
     Active Substance: ROMIPLOSTIM
     Dosage: 550 MICROGRAM (5MCG/KG)
     Route: 065
     Dates: start: 20210726
  2. NPLATE [Suspect]
     Active Substance: ROMIPLOSTIM
     Dosage: 650 MICROGRAM (6MCG/KG)
     Route: 065
     Dates: start: 20210803
  3. NPLATE [Suspect]
     Active Substance: ROMIPLOSTIM
     Indication: IMMUNE THROMBOCYTOPENIA
     Dosage: UNK
     Route: 065
     Dates: start: 20200218
  4. NPLATE [Suspect]
     Active Substance: ROMIPLOSTIM
     Dosage: 1100 MICROGRAM (10 MCG/KG)
     Route: 065
     Dates: start: 20210809

REACTIONS (1)
  - Loss of therapeutic response [Unknown]
